FAERS Safety Report 23940657 (Version 1)
Quarter: 2024Q2

REPORT INFORMATION
  Report Type: Spontaneous
  Country: US (occurrence: US)
  Receive Date: 20240605
  Receipt Date: 20240605
  Transmission Date: 20240716
  Serious: Yes (Other)
  Sender: FDA-Public Use
  Company Number: US-ALKEM LABORATORIES LIMITED-US-ALKEM-2024-08167

PATIENT
  Age: 41 Year
  Sex: Male

DRUGS (2)
  1. VANCOMYCIN [Suspect]
     Active Substance: VANCOMYCIN
     Indication: Pneumonia staphylococcal
     Dosage: 500 MILLIGRAM, BID
     Route: 042
  2. PIPERACILLIN AND TAZOBACTAM [Concomitant]
     Active Substance: PIPERACILLIN SODIUM\TAZOBACTAM SODIUM
     Indication: Pneumonia staphylococcal
     Dosage: 4.5 GRAM, TID (EVERY 8 HOURS)
     Route: 042

REACTIONS (1)
  - Thrombocytopenia [Recovered/Resolved]
